FAERS Safety Report 10704055 (Version 2)
Quarter: 2015Q1

REPORT INFORMATION
  Report Type: Report from Study
  Country: US (occurrence: US)
  Receive Date: 20150112
  Receipt Date: 20150212
  Transmission Date: 20150721
  Serious: No
  Sender: FDA-Public Use
  Company Number: US-AMGEN INC.-USASL2015000662

PATIENT
  Age: 79 Year
  Sex: Female

DRUGS (1)
  1. ENBREL [Suspect]
     Active Substance: ETANERCEPT
     Indication: RHEUMATOID ARTHRITIS
     Dosage: 50 MG, QWK
     Route: 058
     Dates: start: 201406

REACTIONS (5)
  - Chills [Recovered/Resolved]
  - Fatigue [Not Recovered/Not Resolved]
  - Pain [Recovered/Resolved]
  - Pyrexia [Unknown]
  - Malaise [Unknown]

NARRATIVE: CASE EVENT DATE: 201412
